FAERS Safety Report 8349796-7 (Version None)
Quarter: 2012Q2

REPORT INFORMATION
  Report Type: 
  Country: None (occurrence: None)
  Receive Date: 20120510
  Receipt Date: 20110818
  Transmission Date: 20120825
  Serious: Yes (Death)
  Sender: FDA-Public Use
  Company Number: US-SANOFI-AVENTIS-2011SA053142

PATIENT
  Age: 60 Year
  Sex: Male

DRUGS (5)
  1. LISINOPRIL [Concomitant]
  2. CHOLESTEROL- AND TRIGLYCERIDE REDUCERS [Concomitant]
  3. LANTUS [Suspect]
     Route: 058
     Dates: start: 20110810, end: 20110816
  4. PLAVIX [Suspect]
     Route: 065
     Dates: start: 20110810, end: 20110816
  5. ANTIHYPERTENSIVES [Concomitant]

REACTIONS (1)
  - CARDIAC FAILURE [None]
